FAERS Safety Report 8421591-X (Version None)
Quarter: 2012Q2

REPORT INFORMATION
  Report Type: 
  Country: None (occurrence: None)
  Receive Date: 20120608
  Receipt Date: 20120530
  Transmission Date: 20120825
  Serious: Yes (Hospitalization)
  Sender: FDA-Public Use
  Company Number: JP-SANOFI-AVENTIS-2012SA040624

PATIENT
  Age: 77 Year
  Sex: Male

DRUGS (6)
  1. HERBAL PREPARATION [Suspect]
     Indication: CONSTIPATION
     Route: 065
  2. ZOLPIDEM [Concomitant]
  3. FEXOFENADINE HYDROCHLORIDE [Suspect]
     Route: 065
  4. HALOPERIDOL [Concomitant]
  5. ETIZOLAM [Concomitant]
  6. HERBAL PREPARATION [Suspect]
     Indication: ABDOMINAL DISTENSION
     Route: 065

REACTIONS (1)
  - INTERSTITIAL LUNG DISEASE [None]
